FAERS Safety Report 6258531-8 (Version None)
Quarter: 2009Q3

REPORT INFORMATION
  Report Type: 
  Country: None (occurrence: None)
  Receive Date: 20090707
  Receipt Date: 20090622
  Transmission Date: 20100115
  Serious: Yes (Hospitalization)
  Sender: FDA-Public Use
  Company Number: FR-JNJFOC-20090503988

PATIENT
  Age: 89 Year
  Sex: Male

DRUGS (2)
  1. IXPRIM [Suspect]
     Indication: PAIN
     Route: 048
     Dates: start: 20090406, end: 20090408
  2. PLAVIX [Concomitant]

REACTIONS (4)
  - ATRIAL FIBRILLATION [None]
  - MALAISE [None]
  - SOMNOLENCE [None]
  - TACHYCARDIA [None]
